FAERS Safety Report 12726497 (Version 1)
Quarter: 2016Q3

REPORT INFORMATION
  Report Type: Spontaneous
  Country: FR (occurrence: FR)
  Receive Date: 20160908
  Receipt Date: 20160908
  Transmission Date: 20161109
  Serious: Yes (Other)
  Sender: FDA-Public Use
  Company Number: FR-ABBVIE-16P-056-1721670-00

PATIENT
  Sex: Male

DRUGS (1)
  1. DEPAKINE [Suspect]
     Active Substance: VALPROATE SODIUM
     Indication: MATERNAL EXPOSURE TIMING UNSPECIFIED
     Route: 064

REACTIONS (8)
  - Speech disorder [Not Recovered/Not Resolved]
  - Learning disorder [Not Recovered/Not Resolved]
  - Disturbance in attention [Not Recovered/Not Resolved]
  - Mental disorder [Not Recovered/Not Resolved]
  - Anger [Not Recovered/Not Resolved]
  - Foetal exposure during pregnancy [Unknown]
  - Developmental delay [Not Recovered/Not Resolved]
  - Abnormal behaviour [Not Recovered/Not Resolved]
